FAERS Safety Report 8856749 (Version 1)
Quarter: 2012Q4

REPORT INFORMATION
  Report Type: Spontaneous
  Country: DK (occurrence: None)
  Receive Date: 20121019
  Receipt Date: 20121019
  Transmission Date: 20130627
  Serious: Yes (Life-Threatening, Other)
  Sender: FDA-Public Use
  Company Number: 2012MA012282

PATIENT
  Age: 24 Year
  Sex: Female

DRUGS (3)
  1. METOCLOPRAMIDE [Suspect]
     Indication: VOMITING IN PREGNANCY
     Route: 048
     Dates: start: 20120919, end: 20120922
  2. CYCLIZINE [Concomitant]
  3. VENLAFAXINE [Concomitant]

REACTIONS (4)
  - Retching [None]
  - Swollen tongue [None]
  - Muscle tightness [None]
  - Dyspnoea [None]
